FAERS Safety Report 8843625 (Version 1)
Quarter: 2012Q4

REPORT INFORMATION
  Report Type: Report from Study
  Country: ES (occurrence: ES)
  Receive Date: 20121016
  Receipt Date: 20121016
  Transmission Date: 20130627
  Serious: Yes (Death, Hospitalization)
  Sender: FDA-Public Use
  Company Number: ES-ROCHE-1141336

PATIENT
  Age: 38 Year
  Sex: Female
  Weight: 50 kg

DRUGS (11)
  1. PERTUZUMAB [Suspect]
     Indication: BREAST CANCER METASTATIC
     Route: 042
  2. PERTUZUMAB [Suspect]
     Indication: HEPATIC CANCER METASTATIC
     Route: 042
  3. TRASTUZUMAB [Suspect]
     Indication: BREAST CANCER METASTATIC
     Route: 042
     Dates: start: 20120619, end: 20120822
  4. GEMCITABINE [Suspect]
     Indication: BREAST CANCER METASTATIC
     Route: 042
     Dates: start: 20120822, end: 20120822
  5. KYTRIL [Concomitant]
     Indication: VOMITING
     Route: 042
     Dates: start: 20120619, end: 20120829
  6. DEXAMETHASONE [Concomitant]
     Indication: VOMITING
     Route: 042
     Dates: start: 20120619, end: 20120829
  7. MST [Concomitant]
     Indication: PAIN
     Route: 048
     Dates: start: 20120608, end: 20120829
  8. ALDACTONE [Concomitant]
     Indication: POLYURIA
     Route: 048
     Dates: start: 20120608, end: 20120829
  9. TARGIN [Concomitant]
  10. TAXOL [Concomitant]
  11. LAPATINIB [Concomitant]

REACTIONS (1)
  - Disease progression [Fatal]
